FAERS Safety Report 21068409 (Version 3)
Quarter: 2022Q4

REPORT INFORMATION
  Report Type: Spontaneous
  Country: CA (occurrence: CA)
  Receive Date: 20220712
  Receipt Date: 20221224
  Transmission Date: 20230113
  Serious: Yes (Other)
  Sender: FDA-Public Use
  Company Number: None

PATIENT
  Age: 73 Year
  Sex: Female

DRUGS (6)
  1. METHOTREXATE [Suspect]
     Active Substance: METHOTREXATE
     Indication: Dermatomyositis
     Route: 065
  2. AZATHIOPRINE [Suspect]
     Active Substance: AZATHIOPRINE
     Indication: Dermatomyositis
     Dosage: 1 EVERY 1 DAYS
     Route: 065
  3. CYCLOSPORINE [Suspect]
     Active Substance: CYCLOSPORINE
     Indication: Dermatomyositis
     Dosage: 2 EVERY 1 DAYS
     Route: 048
  4. HUMAN IMMUNOGLOBULIN G [Suspect]
     Active Substance: HUMAN IMMUNOGLOBULIN G
     Indication: Dermatomyositis
     Route: 042
  5. PREDNISONE [Suspect]
     Active Substance: PREDNISONE
     Indication: Dermatomyositis
     Dosage: 1 EVERY 1 DAYS
     Route: 065
  6. RITUXIMAB [Concomitant]
     Active Substance: RITUXIMAB

REACTIONS (8)
  - Blood creatinine increased [Unknown]
  - Drug ineffective [Unknown]
  - Dysphagia [Unknown]
  - Illness [Unknown]
  - Interstitial lung disease [Unknown]
  - Rash [Unknown]
  - Weight decreased [Unknown]
  - Off label use [Unknown]
